FAERS Safety Report 5233702-8 (Version None)
Quarter: 2007Q1

REPORT INFORMATION
  Report Type: 
  Country: None (occurrence: None)
  Receive Date: 20070208
  Receipt Date: 20070202
  Transmission Date: 20070707
  Serious: Yes (Other)
  Sender: FDA-Public Use
  Company Number: JP-GLAXOSMITHKLINE-B0125542A

PATIENT
  Age: 80 Year
  Sex: Female
  Weight: 38 kg

DRUGS (18)
  1. ZOVIRAX [Suspect]
     Indication: HERPES ZOSTER
     Dosage: 400MG TWICE PER DAY
     Route: 048
     Dates: start: 20001207, end: 20001210
  2. BUFFERIN [Concomitant]
     Route: 048
  3. GASTER [Concomitant]
     Route: 065
  4. GASMOTIN [Concomitant]
     Route: 065
  5. CALTAN [Concomitant]
     Route: 065
  6. METOPROLOL TARTRATE [Concomitant]
     Route: 065
  7. ASPIRIN [Concomitant]
     Indication: CEREBRAL INFARCTION
     Dosage: 1TAB PER DAY
     Route: 048
  8. FAMOTIDINE [Concomitant]
     Dosage: 10MG PER DAY
     Route: 048
  9. MOSAPRIDE CITRATE [Concomitant]
     Dosage: 3TAB PER DAY
     Route: 048
     Dates: end: 20001210
  10. CALCITRIOL [Concomitant]
     Indication: HYPERPARATHYROIDISM SECONDARY
     Dosage: 2CAP PER DAY
     Route: 048
  11. PRECIPITATED CALCIUM CARBONATE [Concomitant]
     Dosage: 3TAB PER DAY
     Route: 048
     Dates: end: 20001210
  12. AMEZINIUM METISULFATE [Concomitant]
     Indication: HYPOTENSION
     Dosage: 1TAB PER DAY
     Route: 048
     Dates: end: 20001210
  13. NITROGLYCERIN [Concomitant]
     Route: 062
     Dates: end: 20001210
  14. DIALYSIS [Concomitant]
  15. DIGOXIN [Concomitant]
     Indication: ATRIAL FIBRILLATION
     Dosage: .125MG PER DAY
     Route: 048
     Dates: start: 20001202
  16. METOPROLOL TARTRATE [Concomitant]
     Indication: ATRIAL FIBRILLATION
     Dosage: 20MG PER DAY
     Dates: start: 20001204, end: 20001214
  17. MECOBALAMIN [Concomitant]
     Indication: HERPES ZOSTER
     Dosage: 3TAB PER DAY
     Route: 048
     Dates: start: 20001207, end: 20001210
  18. EBASTINE [Concomitant]
     Indication: PRURITUS
     Dosage: 5MG PER DAY
     Route: 048

REACTIONS (8)
  - BLOOD CREATININE INCREASED [None]
  - BLOOD UREA INCREASED [None]
  - DEPRESSED LEVEL OF CONSCIOUSNESS [None]
  - DRUG TOXICITY [None]
  - DYSKINESIA [None]
  - MALAISE [None]
  - SPEECH DISORDER [None]
  - TREMOR [None]
